FAERS Safety Report 16956965 (Version 1)
Quarter: 2019Q4

REPORT INFORMATION
  Report Type: Spontaneous
  Country: US (occurrence: US)
  Receive Date: 20191024
  Receipt Date: 20191024
  Transmission Date: 20200122
  Serious: No
  Sender: FDA-Public Use
  Company Number: US-009507513-1910USA007511

PATIENT
  Age: 25 Year
  Sex: Female
  Weight: 146.49 kg

DRUGS (2)
  1. NEXPLANON [Suspect]
     Active Substance: ETONOGESTREL
     Dosage: ONE ROD EVERY 3 YEARS (UNIT 2)
     Route: 059
     Dates: start: 20190315, end: 20191008
  2. NEXPLANON [Suspect]
     Active Substance: ETONOGESTREL
     Dosage: ONE ROD EVERY 3 YEARS (UNIT 1)
     Route: 059
     Dates: end: 20190315

REACTIONS (3)
  - Complication of device removal [Recovered/Resolved]
  - Application site discomfort [Unknown]
  - Device breakage [Recovered/Resolved]

NARRATIVE: CASE EVENT DATE: 20190315
